FAERS Safety Report 14653283 (Version 4)
Quarter: 2018Q2

REPORT INFORMATION
  Report Type: Spontaneous
  Country: US (occurrence: US)
  Receive Date: 20180319
  Receipt Date: 20180422
  Transmission Date: 20180711
  Serious: No
  Sender: FDA-Public Use
  Company Number: US-APOTEX-2018AP005460

PATIENT
  Sex: Male

DRUGS (2)
  1. MODAFINIL TABLETS USP [Suspect]
     Active Substance: MODAFINIL
     Dosage: ONE AND HALF TABLET AT 3PM
     Route: 065
     Dates: start: 201712
  2. MODAFINIL TABLETS USP [Suspect]
     Active Substance: MODAFINIL
     Indication: FATIGUE
     Dosage: 1 DF, Q.AM, QD
     Route: 065

REACTIONS (4)
  - Drug effect decreased [Unknown]
  - Extra dose administered [Unknown]
  - Product use issue [Unknown]
  - Asthenia [Recovered/Resolved]
